FAERS Safety Report 9701738 (Version 2)
Quarter: 2013Q4

REPORT INFORMATION
  Report Type: Spontaneous
  Country: HR (occurrence: HR)
  Receive Date: 20131121
  Receipt Date: 20131202
  Transmission Date: 20140711
  Serious: Yes (Death, Hospitalization, Other)
  Sender: FDA-Public Use
  Company Number: HR-SA-2013SA118451

PATIENT
  Age: 62 Year
  Sex: Male
  Weight: 80 kg

DRUGS (6)
  1. CEREZYME [Suspect]
     Indication: GAUCHER^S DISEASE
     Dosage: DOSE:45 UNIT(S)/KILOGRAM BODYWEIGHT
     Route: 042
     Dates: start: 2002, end: 20131022
  2. NORMABEL (DIAZEPAM) [Concomitant]
     Route: 048
  3. INDOMETACIN [Concomitant]
     Route: 048
  4. VOLTAREN [Concomitant]
     Route: 048
  5. TAMSULOSIN [Concomitant]
     Route: 048
  6. FUROSEMIDE [Concomitant]
     Route: 048

REACTIONS (9)
  - Death [Fatal]
  - Asthenia [Recovered/Resolved]
  - Oedema peripheral [Recovered/Resolved]
  - Pain [Unknown]
  - Urinary retention [Unknown]
  - Apathy [Unknown]
  - Micturition disorder [Unknown]
  - Pollakiuria [Unknown]
  - Fatigue [Unknown]
